FAERS Safety Report 5267148-3 (Version None)
Quarter: 2007Q1

REPORT INFORMATION
  Report Type: 
  Country: None (occurrence: None)
  Receive Date: 20070316
  Receipt Date: 20070219
  Transmission Date: 20070707
  Serious: Yes (Other)
  Sender: FDA-Public Use
  Company Number: US-AVENTIS-200711711US

PATIENT

DRUGS (1)
  1. LASIX [Suspect]
     Dosage: DOSE: UNK

REACTIONS (2)
  - ALVEOLITIS [None]
  - PNEUMONITIS [None]
